FAERS Safety Report 7108746-1 (Version None)
Quarter: 2010Q4

REPORT INFORMATION
  Report Type: 
  Country: None (occurrence: None)
  Receive Date: 20101117
  Receipt Date: 20101108
  Transmission Date: 20110411
  Serious: Yes (Hospitalization)
  Sender: FDA-Public Use
  Company Number: DE-ASTRAZENECA-2010SE53392

PATIENT
  Age: 61 Year
  Sex: Female

DRUGS (18)
  1. SEROQUEL [Suspect]
     Indication: DEPRESSION
     Route: 048
     Dates: start: 20090101, end: 20100605
  2. SEROQUEL [Suspect]
     Route: 048
     Dates: start: 20100606, end: 20100704
  3. SEROQUEL [Suspect]
     Route: 048
     Dates: start: 20100707, end: 20100804
  4. SEROQUEL [Suspect]
     Route: 048
     Dates: start: 20100805, end: 20100808
  5. SEROQUEL [Suspect]
     Route: 048
     Dates: start: 20100809, end: 20100810
  6. SEROQUEL [Suspect]
     Route: 048
     Dates: start: 20100811, end: 20100815
  7. SEROQUEL [Suspect]
     Route: 048
     Dates: start: 20100816
  8. SEROQUEL [Suspect]
     Route: 048
     Dates: start: 20100817
  9. QUILONUM RETARD [Suspect]
     Route: 048
  10. ELONTRIL [Concomitant]
     Route: 048
  11. LYRICA [Concomitant]
     Route: 048
     Dates: end: 20100805
  12. LYRICA [Concomitant]
     Route: 048
     Dates: start: 20100806, end: 20100822
  13. LYRICA [Concomitant]
     Route: 048
     Dates: start: 20100823, end: 20100903
  14. LYRICA [Concomitant]
     Route: 048
     Dates: start: 20100904
  15. SIFROL [Concomitant]
     Route: 048
     Dates: end: 20100825
  16. ASPIRIN [Concomitant]
     Route: 048
  17. SIMVASTATIN [Concomitant]
     Route: 048
  18. LEVOTHYROXINE SODIUM [Concomitant]
     Route: 048
     Dates: start: 20100726

REACTIONS (1)
  - PLEUROTHOTONUS [None]
